FAERS Safety Report 20957307 (Version 1)
Quarter: 2022Q2

REPORT INFORMATION
  Report Type: Spontaneous
  Country: US (occurrence: US)
  Receive Date: 20220614
  Receipt Date: 20220614
  Transmission Date: 20220720
  Serious: No
  Sender: FDA-Public Use
  Company Number: US-PFM-2021-04917

PATIENT
  Age: 3 Year
  Sex: Male
  Weight: 14.51 kg

DRUGS (2)
  1. HEMANGEOL [Suspect]
     Active Substance: PROPRANOLOL HYDROCHLORIDE
     Indication: Haemangioma
     Dosage: 3.5 ML, BID (2/DAY)
     Route: 048
     Dates: start: 20201105
  2. Children^s Multiivitamin Gummies [Concomitant]
     Indication: Product used for unknown indication
     Dosage: UNK
     Route: 065
     Dates: start: 20201016

REACTIONS (4)
  - Sleep disorder [Unknown]
  - Insomnia [Unknown]
  - Product administered to patient of inappropriate age [Unknown]
  - Off label use [Unknown]

NARRATIVE: CASE EVENT DATE: 20210419
